FAERS Safety Report 5708899-3 (Version None)
Quarter: 2008Q2

REPORT INFORMATION
  Report Type: 
  Country: None (occurrence: None)
  Receive Date: 20080416
  Receipt Date: 20080408
  Transmission Date: 20081010
  Serious: Yes (Disabling, Other)
  Sender: FDA-Public Use
  Company Number: 19033

PATIENT
  Age: 59 Year
  Sex: Female

DRUGS (2)
  1. PACLITAXEL [Suspect]
     Indication: NEOPLASM MALIGNANT
  2. BEVACIZUMAB [Suspect]
     Indication: NEOPLASM MALIGNANT
     Dosage: 5 MG/KG WEEKLY

REACTIONS (10)
  - ANTINUCLEAR ANTIBODY POSITIVE [None]
  - BURNING SENSATION [None]
  - CONDITION AGGRAVATED [None]
  - DISEASE PROGRESSION [None]
  - INTESTINAL OBSTRUCTION [None]
  - NAIL DISCOLOURATION [None]
  - NEOPLASM MALIGNANT [None]
  - OSTEOARTHRITIS [None]
  - OVARIAN CANCER RECURRENT [None]
  - SKIN EXFOLIATION [None]
